FAERS Safety Report 22947601 (Version 2)
Quarter: 2023Q4

REPORT INFORMATION
  Report Type: Spontaneous
  Country: US (occurrence: US)
  Receive Date: 20230915
  Receipt Date: 20231210
  Transmission Date: 20240110
  Serious: No
  Sender: FDA-Public Use
  Company Number: US-COLLEGIUM PHARMACEUTICAL, INC.-20230200181

PATIENT

DRUGS (9)
  1. NUCYNTA ER [Suspect]
     Active Substance: TAPENTADOL HYDROCHLORIDE
     Indication: Depression
     Dosage: 100 MG, BID
     Route: 065
     Dates: start: 2017
  2. NUCYNTA [Suspect]
     Active Substance: TAPENTADOL HYDROCHLORIDE
     Indication: Flashback
     Dosage: 100 MILLIGRAM, PRN
     Route: 065
     Dates: start: 2017
  3. NUCYNTA [Suspect]
     Active Substance: TAPENTADOL HYDROCHLORIDE
     Indication: Suicidal ideation
  4. THIAMINE [Concomitant]
     Active Substance: THIAMINE
     Indication: Blood iron decreased
     Dosage: 100 MILLIGRAM, SINGLE
     Route: 065
  5. Bupropion (Welbutryn) XL [Concomitant]
     Indication: Product used for unknown indication
     Dosage: 300 MILLIGRAM, QD
     Route: 048
  6. CARVEDILOL 1A [Concomitant]
     Indication: Blood pressure measurement
     Dosage: 45 MILLIGRAM (HALF A TABLET TWICE DAILY)
     Route: 065
  7. VITAMIN D3 [Concomitant]
     Active Substance: CHOLECALCIFEROL
     Indication: Product used for unknown indication
     Dosage: 4000 INTERNATIONAL UNIT, QD
     Route: 065
  8. PLAVIX [Concomitant]
     Active Substance: CLOPIDOGREL BISULFATE
     Indication: Product used for unknown indication
     Dosage: ONE TABLET, QD
     Route: 065
  9. CYMBALTA [Concomitant]
     Active Substance: DULOXETINE HYDROCHLORIDE
     Indication: Product used for unknown indication
     Dosage: 120 MG, UNKNOWN
     Route: 065

REACTIONS (2)
  - Off label use [Unknown]
  - Therapeutic product effective for unapproved indication [Unknown]

NARRATIVE: CASE EVENT DATE: 20170101
